FAERS Safety Report 18528940 (Version 1)
Quarter: 2020Q4

REPORT INFORMATION
  Report Type: Spontaneous
  Country: US (occurrence: US)
  Receive Date: 20201120
  Receipt Date: 20201120
  Transmission Date: 20210114
  Serious: No
  Sender: FDA-Public Use
  Company Number: US-PFIZER INC-2020409118

PATIENT
  Age: 80 Year
  Sex: Female
  Weight: 78.47 kg

DRUGS (5)
  1. RITUXAN [Concomitant]
     Active Substance: RITUXIMAB
  2. ORENCIA [Concomitant]
     Active Substance: ABATACEPT
  3. XELJANZ XR [Suspect]
     Active Substance: TOFACITINIB CITRATE
     Indication: RHEUMATOID ARTHRITIS
     Dosage: 11 MG, 1X/DAY (11MG BY MOUTH ONCE A DAY)
     Route: 048
     Dates: start: 20201023, end: 20201110
  4. REMICADE [Concomitant]
     Active Substance: INFLIXIMAB
     Dosage: UNK
  5. SIMPONI [Concomitant]
     Active Substance: GOLIMUMAB

REACTIONS (6)
  - Abdominal pain upper [Recovering/Resolving]
  - Fatigue [Recovering/Resolving]
  - Hyperhidrosis [Recovered/Resolved]
  - Headache [Recovering/Resolving]
  - Joint stiffness [Recovering/Resolving]
  - Diarrhoea [Recovered/Resolved]

NARRATIVE: CASE EVENT DATE: 202010
